FAERS Safety Report 7527424-8 (Version None)
Quarter: 2011Q2

REPORT INFORMATION
  Report Type: 
  Country: None (occurrence: None)
  Receive Date: 20110603
  Receipt Date: 20110520
  Transmission Date: 20111010
  Serious: Yes (Other)
  Sender: FDA-Public Use
  Company Number: JPI-P-015176

PATIENT
  Age: 53 Year
  Sex: Female
  Weight: 160 kg

DRUGS (9)
  1. NEBIVOLOL HCL [Concomitant]
  2. AMPHETAMINE, DEXTROAMPHETAMINE MIXED SALTS [Concomitant]
  3. XYREM [Suspect]
     Indication: NARCOLEPSY
     Dosage: 2 IN 1 D, ORAL; 7.5 (3.75 GM, 2 IN 2 D), ORAL
     Dates: start: 20110419, end: 20110101
  4. XYREM [Suspect]
     Indication: SOMNOLENCE
     Dosage: 2 IN 1 D, ORAL; 7.5 (3.75 GM, 2 IN 2 D), ORAL
     Dates: start: 20110419, end: 20110101
  5. XYREM [Suspect]
     Indication: NARCOLEPSY
     Dosage: 2 IN 1 D, ORAL; 7.5 (3.75 GM, 2 IN 2 D), ORAL
     Dates: start: 20110101
  6. XYREM [Suspect]
     Indication: SOMNOLENCE
     Dosage: 2 IN 1 D, ORAL; 7.5 (3.75 GM, 2 IN 2 D), ORAL
     Dates: start: 20110101
  7. FLUOXETINE HYDROCHLORIDE [Concomitant]
  8. ATORVASTATIN CALCIUM [Concomitant]
  9. LANSOPRAZOLE [Concomitant]

REACTIONS (5)
  - DEHYDRATION [None]
  - CHILLS [None]
  - THINKING ABNORMAL [None]
  - DIZZINESS [None]
  - HYPERHIDROSIS [None]
